FAERS Safety Report 9254929 (Version 1)
Quarter: 2013Q1

REPORT INFORMATION
  Report Type: Spontaneous
  Country: US (occurrence: None)
  Receive Date: 20121203
  Receipt Date: 20121203
  Transmission Date: 20140127
  Serious: Yes (Hospitalization)
  Sender: FDA-Public Use
  Company Number: 1210USA000879

PATIENT
  Age: 44 Year
  Sex: Male

DRUGS (1)
  1. JANUMET (SITAGLIPTIN PHOSPHATE (+) METFORMIN HYDRLCHLORIDE ) FILM-COATED TABLET, 500/1000 [Suspect]
     Dosage: 1 DF, BID, ORAL
     Route: 048

REACTIONS (1)
  - Pancreatitis acute [None]
